FAERS Safety Report 6492951-1 (Version None)
Quarter: 2009Q4

REPORT INFORMATION
  Report Type: 
  Country: None (occurrence: None)
  Receive Date: 20091214
  Receipt Date: 20091209
  Transmission Date: 20100525
  Serious: Yes (Death, Hospitalization, Other)
  Sender: FDA-Public Use
  Company Number: PHHY2009AU51430

PATIENT
  Sex: Female

DRUGS (1)
  1. CLOZARIL [Suspect]
     Dosage: 250 MG, UNK
     Dates: start: 20020319

REACTIONS (6)
  - AGGRESSION [None]
  - AGITATION [None]
  - DELIRIUM [None]
  - FALL [None]
  - INFECTION [None]
  - SYNCOPE [None]
